FAERS Safety Report 6611242-9 (Version None)
Quarter: 2010Q1

REPORT INFORMATION
  Report Type: 
  Country: None (occurrence: None)
  Receive Date: 20100301
  Receipt Date: 20100301
  Transmission Date: 20100710
  Serious: Yes (Other)
  Sender: FDA-Public Use
  Company Number: None

PATIENT
  Age: 54 Year
  Sex: Female
  Weight: 131.5431 kg

DRUGS (1)
  1. LEVOTHYROXINE SODIUM [Suspect]
     Indication: THYROIDECTOMY
     Dosage: 1 DAILY PO
     Route: 048
     Dates: start: 20040924, end: 20100127

REACTIONS (6)
  - ALOPECIA [None]
  - DRY SKIN [None]
  - DYSGEUSIA [None]
  - FEELING COLD [None]
  - PRODUCT QUALITY ISSUE [None]
  - SKIN EXFOLIATION [None]
